FAERS Safety Report 8793806 (Version 2)
Quarter: 2012Q4

REPORT INFORMATION
  Report Type: Report from Study
  Country: US (occurrence: US)
  Receive Date: 20120918
  Receipt Date: 20120928
  Transmission Date: 20130627
  Serious: Yes (Hospitalization)
  Sender: FDA-Public Use
  Company Number: US-BRISTOL-MYERS SQUIBB COMPANY-16941353

PATIENT
  Age: 49 Year
  Sex: Female
  Weight: 104 kg

DRUGS (4)
  1. IPILIMUMAB [Suspect]
     Indication: MALIGNANT MELANOMA
     Dosage: Last dose; 27Aug12
     Route: 042
     Dates: start: 20120806
  2. CIPROFLOXACIN [Concomitant]
  3. LORAZEPAM [Concomitant]
     Dosage: Tab Prn
  4. PREDNISONE [Concomitant]
     Dosage: 2Tabs/d
     Route: 048

REACTIONS (3)
  - Autoimmune hepatitis [Recovering/Resolving]
  - Pyrexia [Recovering/Resolving]
  - Hyperthyroidism [Recovering/Resolving]
